FAERS Safety Report 20720969 (Version 2)
Quarter: 2022Q2

REPORT INFORMATION
  Report Type: Spontaneous
  Country: IR (occurrence: IR)
  Receive Date: 20220418
  Receipt Date: 20220422
  Transmission Date: 20220721
  Serious: Yes (Hospitalization)
  Sender: FDA-Public Use
  Company Number: IR-PFIZER INC-202200533133

PATIENT
  Age: 32 Year
  Sex: Male

DRUGS (1)
  1. SILDENAFIL CITRATE [Suspect]
     Active Substance: SILDENAFIL CITRATE
     Indication: Erectile dysfunction
     Dosage: NO MORE THAN ONCE A DAY, 1 HOUR BEFORE SEXUAL INTERCOURSE OVER THE OVER PAST 2 WEEKS

REACTIONS (1)
  - Substance-induced psychotic disorder [Recovered/Resolved]
